FAERS Safety Report 5273015-1 (Version None)
Quarter: 2007Q1

REPORT INFORMATION
  Report Type: 
  Country: None (occurrence: None)
  Receive Date: 20070316
  Receipt Date: 20070307
  Transmission Date: 20070707
  Serious: Yes (Hospitalization)
  Sender: FDA-Public Use
  Company Number: TUK2007A00023

PATIENT
  Age: 61 Year

DRUGS (2)
  1. ACTOS [Suspect]
     Dosage: 15 MG
  2. GLICLAZIDE (GLICLAZIDE) [Concomitant]

REACTIONS (2)
  - DRUG INTERACTION [None]
  - INTERNATIONAL NORMALISED RATIO DECREASED [None]
